FAERS Safety Report 9875479 (Version 1)
Quarter: 2013Q2

REPORT INFORMATION
  Report Type: Spontaneous
  Country: US (occurrence: None)
  Receive Date: 20121107
  Receipt Date: 20121107
  Transmission Date: 20140414
  Serious: No
  Sender: FDA-Public Use
  Company Number: 2012HGS-003725

PATIENT
  Age: 35 Year
  Sex: Female

DRUGS (6)
  1. BENLYSTA [Suspect]
     Indication: SYSTEMIC LUPUS ERYTHEMATOSUS
     Dates: start: 20120411
  2. PLAQUENIL (HYDROXYCHLOROQUINE SULFATE) [Concomitant]
  3. IMURAN (AZATHIOPRINE) [Concomitant]
  4. ZOLOFT (SERTRALINE HYDROCHLORIDE) [Concomitant]
  5. XANAX (ALPRAZOLAM) [Concomitant]
  6. NAPROXEN (NAPROXEN) [Concomitant]

REACTIONS (3)
  - Hypertension [None]
  - Tachycardia [None]
  - Dizziness [None]
